FAERS Safety Report 9745452 (Version 2)
Quarter: 2013Q4

REPORT INFORMATION
  Report Type: Spontaneous
  Country: GB (occurrence: GB)
  Receive Date: 20131211
  Receipt Date: 20131218
  Transmission Date: 20140711
  Serious: Yes (Other)
  Sender: FDA-Public Use
  Company Number: GB-THROMBOGENICS INC-JET-2013-345

PATIENT
  Sex: Female

DRUGS (1)
  1. JETREA [Suspect]
     Indication: PRODUCT USED FOR UNKNOWN INDICATION
     Dosage: 0.125 MG, ONE TIME DOSE
     Route: 031
     Dates: start: 20131119, end: 20131119

REACTIONS (9)
  - Retinal vascular disorder [Unknown]
  - Blindness transient [Recovered/Resolved]
  - Photopsia [Unknown]
  - Colour blindness acquired [Unknown]
  - Visual impairment [Not Recovered/Not Resolved]
  - Metamorphopsia [Unknown]
  - Vision blurred [Unknown]
  - Night blindness [Unknown]
  - Retinal disorder [Unknown]
